FAERS Safety Report 5146321-9 (Version None)
Quarter: 2006Q4

REPORT INFORMATION
  Report Type: 
  Country: None (occurrence: None)
  Receive Date: 20061102
  Receipt Date: 20061013
  Transmission Date: 20070319
  Serious: Yes (Other)
  Sender: FDA-Public Use
  Company Number: 2006131276

PATIENT

DRUGS (1)
  1. SOLU-MEDROL [Suspect]
     Dosage: 125 MG

REACTIONS (3)
  - ANGIONEUROTIC OEDEMA [None]
  - HYPERTENSION [None]
  - PRURITUS [None]
